FAERS Safety Report 8349537-3 (Version None)
Quarter: 2012Q2

REPORT INFORMATION
  Report Type: 
  Country: None (occurrence: None)
  Receive Date: 20120510
  Receipt Date: 20120426
  Transmission Date: 20120825
  Serious: Yes (Hospitalization)
  Sender: FDA-Public Use
  Company Number: FR-CELGENEUS-056-21880-12042974

PATIENT
  Sex: Male

DRUGS (10)
  1. MORPHINE SULFATE [Suspect]
     Indication: PAIN
     Route: 048
     Dates: start: 20120403
  2. BORTEZOMIB [Suspect]
     Dosage: 2.6 MILLIGRAM
     Route: 065
     Dates: start: 20120313
  3. SULFAMETHOXAZOLE AND TRIMETHOPRIM [Concomitant]
     Route: 048
     Dates: start: 20120313
  4. VALACICLOVIR [Concomitant]
     Route: 048
     Dates: start: 20120313
  5. REVLIMID [Suspect]
     Dosage: 25 MILLIGRAM
     Route: 048
     Dates: start: 20120313
  6. ZOMETA [Concomitant]
     Route: 065
     Dates: start: 20120313
  7. DEXAMETHASONE [Suspect]
     Dosage: 20 MILLIGRAM
     Route: 065
     Dates: start: 20120313
  8. LACTULOSE [Concomitant]
     Indication: CONSTIPATION
     Route: 048
     Dates: start: 20120320
  9. AMOXICILLIN [Concomitant]
     Dosage: 1 GRAM
     Route: 048
     Dates: start: 20120313
  10. FENTANYL CITRATE [Suspect]
     Indication: PAIN
     Route: 062
     Dates: start: 20120403

REACTIONS (1)
  - SUBILEUS [None]
